FAERS Safety Report 11914746 (Version 1)
Quarter: 2016Q1

REPORT INFORMATION
  Report Type: Spontaneous
  Country: US (occurrence: US)
  Receive Date: 20160113
  Receipt Date: 20160113
  Transmission Date: 20160526
  Serious: No
  Sender: FDA-Public Use
  Company Number: US-GLAXOSMITHKLINE-US2016002550

PATIENT
  Sex: Female

DRUGS (4)
  1. BENICAR [Concomitant]
     Active Substance: OLMESARTAN MEDOXOMIL
  2. FISH OIL SUPPLEMENT [Suspect]
     Active Substance: FISH OIL
     Indication: PRODUCT USED FOR UNKNOWN INDICATION
     Dosage: UNK
     Dates: start: 2010
  3. LORAZEPAM. [Concomitant]
     Active Substance: LORAZEPAM
  4. LOVAZA [Suspect]
     Active Substance: OMEGA-3-ACID ETHYL ESTERS
     Indication: DIASTOLIC DYSFUNCTION
     Dosage: 1 G, BID
     Route: 048
     Dates: start: 2013

REACTIONS (7)
  - Blindness unilateral [None]
  - Coagulopathy [Unknown]
  - Eructation [Recovered/Resolved]
  - Iris injury [None]
  - Corneal transplant [None]
  - Iatrogenic injury [None]
  - Therapeutic response unexpected [Unknown]

NARRATIVE: CASE EVENT DATE: 2010
